FAERS Safety Report 8219886-8 (Version None)
Quarter: 2012Q1

REPORT INFORMATION
  Report Type: 
  Country: None (occurrence: None)
  Receive Date: 20120319
  Receipt Date: 20120313
  Transmission Date: 20120608
  Serious: Yes (Death)
  Sender: FDA-Public Use
  Company Number: US-CELGENEUS-163-21880-11122287

PATIENT
  Sex: Male

DRUGS (5)
  1. REVLIMID [Suspect]
     Indication: MULTIPLE MYELOMA
     Dosage: 10 MILLIGRAM
     Route: 048
     Dates: start: 20101001
  2. REVLIMID [Suspect]
     Dosage: 10 MILLIGRAM
     Route: 048
     Dates: start: 20110701, end: 20110907
  3. OXYCONTIN [Concomitant]
     Indication: BACK PAIN
     Dosage: 20 MILLIGRAM
     Route: 048
  4. LORTAB [Concomitant]
     Indication: BACK PAIN
     Dosage: 5/500MG
     Route: 048
  5. LASIX [Concomitant]
     Indication: HYPERTENSION
     Dosage: 40 MILLIGRAM
     Route: 048

REACTIONS (1)
  - DEATH [None]
